FAERS Safety Report 9711224 (Version 1)
Quarter: 2013Q4

REPORT INFORMATION
  Report Type: Spontaneous
  Country: US (occurrence: US)
  Receive Date: 20131126
  Receipt Date: 20131126
  Transmission Date: 20140711
  Serious: No
  Sender: FDA-Public Use
  Company Number: US-BRISTOL-MYERS SQUIBB COMPANY-18742445

PATIENT
  Age: 49 Year
  Sex: Male
  Weight: 110.2 kg

DRUGS (3)
  1. BYDUREON [Suspect]
     Dosage: INJECTION
  2. METFORMIN [Concomitant]
     Route: 048
  3. LIPITOR [Concomitant]
     Indication: BLOOD CHOLESTEROL INCREASED

REACTIONS (1)
  - Injection site mass [Unknown]
